FAERS Safety Report 9335550 (Version 2)
Quarter: 2013Q2

REPORT INFORMATION
  Report Type: Spontaneous
  Country: TR (occurrence: TR)
  Receive Date: 20130605
  Receipt Date: 20130620
  Transmission Date: 20140414
  Serious: Yes (Other)
  Sender: FDA-Public Use
  Company Number: TR-GLAXOSMITHKLINE-B0896233A

PATIENT
  Age: 2 Year
  Sex: Male
  Weight: 14 kg

DRUGS (4)
  1. AVAMYS NASAL SPRAY [Suspect]
     Indication: PRODUCT USED FOR UNKNOWN INDICATION
     Route: 045
     Dates: start: 20130507, end: 20130517
  2. HYDROCORTISONE [Concomitant]
     Indication: HYPOPITUITARISM
     Route: 048
  3. EUTHYROX [Concomitant]
     Indication: HYPOPITUITARISM
     Dosage: 25MCG PER DAY
     Route: 048
  4. GENOTROPIN [Concomitant]
     Indication: HYPOPITUITARISM

REACTIONS (1)
  - Strabismus [Unknown]
